FAERS Safety Report 10959927 (Version 1)
Quarter: 2015Q1

REPORT INFORMATION
  Report Type: Spontaneous
  Country: US (occurrence: None)
  Receive Date: 20150224
  Receipt Date: 20150224
  Transmission Date: 20150721
  Serious: Yes (Hospitalization)
  Sender: FDA-Public Use
  Company Number: 1713747-2014-999101

PATIENT
  Age: 19 Month
  Sex: Male
  Weight: 10.5 kg

DRUGS (15)
  1. FERROUS SULFATE [Concomitant]
     Active Substance: FERROUS SULFATE\FERROUS SULFATE, DRIED
  2. AMPHOTERICIN B. [Concomitant]
     Active Substance: AMPHOTERICIN B
  3. EPOGEN [Concomitant]
     Active Substance: ERYTHROPOIETIN
  4. ONDANSETRON [Concomitant]
     Active Substance: ONDANSETRON
  5. AMOXICILLIN. [Concomitant]
     Active Substance: AMOXICILLIN
  6. FLUCONAZOLE. [Concomitant]
     Active Substance: FLUCONAZOLE
  7. FREEDOM 5-LEAD PEDIATRIC CYCLER SET [Concomitant]
  8. FREEDOM CYCLER [Concomitant]
  9. AMLODIPINE [Concomitant]
     Active Substance: AMLODIPINE BESYLATE
  10. CEFEPINE [Concomitant]
  11. DELFLEX [Suspect]
     Active Substance: CALCIUM CHLORIDE\DEXTROSE MONOHYDRATE\MAGNESIUM CHLORIDE\SODIUM CHLORIDE\SODIUM LACTATE
     Indication: PERITONEAL DIALYSIS
     Route: 033
  12. SODIUM CHLORIDE. [Concomitant]
     Active Substance: SODIUM CHLORIDE
  13. LANSOPRAZOLE. [Concomitant]
     Active Substance: LANSOPRAZOLE
  14. VITAMIN D [Concomitant]
     Active Substance: CHOLECALCIFEROL
  15. DELFLEX [Suspect]
     Active Substance: CALCIUM CHLORIDE\DEXTROSE MONOHYDRATE\MAGNESIUM CHLORIDE\SODIUM CHLORIDE\SODIUM LACTATE
     Indication: CHRONIC KIDNEY DISEASE
     Route: 033

REACTIONS (1)
  - Peritonitis [None]

NARRATIVE: CASE EVENT DATE: 20140516
